FAERS Safety Report 7553046-9 (Version None)
Quarter: 2011Q2

REPORT INFORMATION
  Report Type: 
  Country: None (occurrence: None)
  Receive Date: 20110616
  Receipt Date: 20110610
  Transmission Date: 20111010
  Serious: Yes (Other)
  Sender: FDA-Public Use
  Company Number: JP-BAXTER-2011BH019279

PATIENT
  Age: 4 Year
  Sex: Male

DRUGS (8)
  1. NITROUS OXIDE [Concomitant]
     Indication: ANAESTHESIA
     Route: 055
  2. ACE INHIBITOR NOS [Concomitant]
     Indication: CARDIAC FAILURE CHRONIC
     Route: 065
  3. SEVOFLURANE [Suspect]
     Indication: GENERAL ANAESTHESIA
     Route: 055
  4. DIGITALIS TAB [Concomitant]
     Indication: CARDIAC FAILURE CHRONIC
     Route: 065
  5. OXYGEN [Concomitant]
     Indication: ANAESTHESIA
     Route: 055
  6. ALPHA-ADRENORECEPTOR ANTAGONISTS [Concomitant]
     Indication: PRODUCT USED FOR UNKNOWN INDICATION
     Route: 065
  7. BETA BLOCKING AGENTS [Concomitant]
     Indication: CARDIAC FAILURE CHRONIC
     Route: 065
  8. DIURETICS [Concomitant]
     Indication: CARDIAC FAILURE CHRONIC
     Route: 065

REACTIONS (4)
  - OXYGEN SATURATION DECREASED [None]
  - CARDIAC ARREST [None]
  - LARYNGOSPASM [None]
  - HYPOTENSION [None]
